FAERS Safety Report 18578894 (Version 1)
Quarter: 2020Q4

REPORT INFORMATION
  Report Type: Spontaneous
  Country: BR (occurrence: BR)
  Receive Date: 20201204
  Receipt Date: 20201204
  Transmission Date: 20210114
  Serious: Yes (Other)
  Sender: FDA-Public Use
  Company Number: BR-NOVOPROD-770613

PATIENT
  Age: 67 Year
  Sex: Male

DRUGS (3)
  1. INSULATARD HM [Suspect]
     Active Substance: INSULIN HUMAN
     Indication: TYPE 2 DIABETES MELLITUS
     Dosage: 10 IU, TID
     Route: 065
  2. AAS [Concomitant]
     Active Substance: ASPIRIN
     Indication: PRODUCT USED FOR UNKNOWN INDICATION
     Dosage: UNK
     Route: 065
  3. FUROSEMIDE. [Concomitant]
     Active Substance: FUROSEMIDE
     Indication: PRODUCT USED FOR UNKNOWN INDICATION
     Dosage: 40 MG, BID
     Route: 065

REACTIONS (10)
  - Chronic kidney disease [Unknown]
  - Diabetic neuropathy [Unknown]
  - Diabetic retinopathy [Unknown]
  - Arteriosclerosis [Unknown]
  - Dyspnoea [Unknown]
  - Diabetic nephropathy [Unknown]
  - Diabetes mellitus inadequate control [Unknown]
  - Coronary artery disease [Unknown]
  - Hypoglycaemia [Unknown]
  - Haemodialysis complication [Unknown]

NARRATIVE: CASE EVENT DATE: 2016
